FAERS Safety Report 8264430-2 (Version None)
Quarter: 2012Q2

REPORT INFORMATION
  Report Type: 
  Country: None (occurrence: None)
  Receive Date: 20120406
  Receipt Date: 20120404
  Transmission Date: 20120825
  Serious: No
  Sender: FDA-Public Use
  Company Number: US-PFIZER INC-2012085100

PATIENT
  Sex: Male
  Weight: 86.168 kg

DRUGS (1)
  1. DETROL LA [Suspect]
     Indication: POLLAKIURIA
     Dosage: 4 MG, DAILY
     Dates: start: 20120301

REACTIONS (1)
  - POLLAKIURIA [None]
